FAERS Safety Report 6308056-6 (Version None)
Quarter: 2009Q3

REPORT INFORMATION
  Report Type: 
  Country: None (occurrence: None)
  Receive Date: 20090813
  Receipt Date: 20090807
  Transmission Date: 20100115
  Serious: Yes (Hospitalization)
  Sender: FDA-Public Use
  Company Number: B0578268A

PATIENT
  Sex: Female
  Weight: 68 kg

DRUGS (8)
  1. LAPATINIB [Suspect]
     Indication: BREAST CANCER
     Dosage: 1250MG PER DAY
     Route: 048
     Dates: start: 20090525
  2. EPIRUBICIN [Suspect]
     Indication: BREAST CANCER
     Dosage: 158MG EVERY 3 WEEKS
     Route: 042
     Dates: start: 20090525
  3. CYCLOPHOSPHAMIDE [Suspect]
     Indication: BREAST CANCER
     Dosage: 1056MG EVERY 3 WEEKS
     Route: 042
     Dates: start: 20090525
  4. FORTECORTIN [Concomitant]
     Dosage: 12MG PER DAY
     Dates: start: 20090525, end: 20090527
  5. NAVOBAN [Concomitant]
     Dosage: 5MG PER DAY
     Dates: start: 20090525, end: 20090527
  6. MCP [Concomitant]
     Dosage: 30MG PER DAY
     Dates: start: 20090525
  7. UROMITEXAN [Concomitant]
     Dosage: 600MG PER DAY
     Dates: start: 20090525, end: 20090525
  8. EMEND [Concomitant]
     Dates: start: 20090525, end: 20090527

REACTIONS (1)
  - LEUKOPENIA [None]
